FAERS Safety Report 14466664 (Version 2)
Quarter: 2018Q1

REPORT INFORMATION
  Report Type: Spontaneous
  Country: IT (occurrence: IT)
  Receive Date: 20180131
  Receipt Date: 20180314
  Transmission Date: 20180509
  Serious: Yes (Death, Hospitalization, Other)
  Sender: FDA-Public Use
  Company Number: IT-AUROBINDO-AUR-APL-2018-003528

PATIENT
  Age: 82 Year
  Sex: Female

DRUGS (17)
  1. FENTANYL. [Interacting]
     Active Substance: FENTANYL
     Indication: ANGIOPATHY
     Dosage: 100 ?G, UNK
     Route: 065
     Dates: start: 20150521
  2. VANCOMYCIN [Interacting]
     Active Substance: VANCOMYCIN
     Indication: STAPHYLOCOCCAL INFECTION
     Dosage: 500 MG, UNK
     Route: 065
  3. RIFAMPICIN [Interacting]
     Active Substance: RIFAMPIN
     Indication: STAPHYLOCOCCAL SKIN INFECTION
     Dosage: 300 MG, QD
     Route: 065
  4. LEVOFLOXACIN. [Interacting]
     Active Substance: LEVOFLOXACIN
     Indication: STAPHYLOCOCCAL SKIN INFECTION
     Dosage: 125 MG, UNK (MAINTENANCE DOSE)
     Route: 048
     Dates: start: 20150522
  5. VANCOMYCIN [Interacting]
     Active Substance: VANCOMYCIN
     Dosage: BY A SWAB APPLIED TO A LEFT FOOT ULCER POSITIVE FOR STAPHYLOCOCCUS AUREUS ()
     Route: 061
     Dates: start: 20150101
  6. FENTANYL. [Interacting]
     Active Substance: FENTANYL
     Indication: PROCEDURAL PAIN
     Dosage: 25 UG, UNK
     Route: 062
     Dates: start: 20150528, end: 20150602
  7. FENTANYL. [Interacting]
     Active Substance: FENTANYL
     Indication: PROCEDURAL PAIN
     Dosage: 25 ?G, UNK
     Route: 048
     Dates: start: 20150602, end: 20150602
  8. VANCOMYCIN [Interacting]
     Active Substance: VANCOMYCIN
     Dosage: 500 MG, UNK ; CYCLICAL
     Route: 042
     Dates: start: 20150522
  9. LEVOFLOXACIN. [Suspect]
     Active Substance: LEVOFLOXACIN
     Indication: STAPHYLOCOCCAL INFECTION
     Dosage: 125 MG, UNK
     Route: 048
  10. VANCOMYCIN [Interacting]
     Active Substance: VANCOMYCIN
     Indication: STAPHYLOCOCCAL INFECTION
     Dosage: 1 G, UNK ; IN TOTAL
     Route: 065
     Dates: start: 20150521, end: 20150521
  11. FENTANYL. [Interacting]
     Active Substance: FENTANYL
     Indication: ISCHAEMIC LIMB PAIN
     Dosage: 12 UG, UNK
     Route: 062
     Dates: start: 20150521, end: 20150528
  12. LEVOFLOXACIN. [Interacting]
     Active Substance: LEVOFLOXACIN
     Dosage: 500 MG, UNK. LOADING DOSE ; IN TOTAL
     Route: 048
     Dates: start: 20150521, end: 20150521
  13. LEVOFLOXACIN. [Interacting]
     Active Substance: LEVOFLOXACIN
     Dosage: 500 MG, UNK (LOADING DOSE)
     Route: 048
     Dates: start: 20150521, end: 20150521
  14. FENTANYL. [Interacting]
     Active Substance: FENTANYL
     Indication: PROCEDURAL PAIN
     Dosage: 200 UG, UNK
     Route: 065
     Dates: start: 20150521
  15. RIFAMPICIN [Interacting]
     Active Substance: RIFAMPIN
     Indication: STAPHYLOCOCCAL INFECTION
     Dosage: 300 MG, UNK
     Route: 042
     Dates: start: 20150521
  16. VANCOMYCIN [Interacting]
     Active Substance: VANCOMYCIN
     Indication: STAPHYLOCOCCAL SKIN INFECTION
     Dosage: 1 G, UNK
     Route: 065
  17. FENTANYL. [Interacting]
     Active Substance: FENTANYL
     Indication: PAIN IN EXTREMITY
     Dosage: 25 UG/HR, UNK
     Route: 062
     Dates: start: 20150521

REACTIONS (17)
  - Sepsis [Fatal]
  - Generalised non-convulsive epilepsy [Fatal]
  - Depressed level of consciousness [Recovering/Resolving]
  - Drug interaction [Fatal]
  - Hallucination [Recovered/Resolved]
  - Pyrexia [Fatal]
  - Status epilepticus [Recovered/Resolved]
  - Overdose [Unknown]
  - Prescribed overdose [Fatal]
  - Status epilepticus [Recovered/Resolved]
  - Altered state of consciousness [Recovered/Resolved]
  - Toxicity to various agents [Unknown]
  - Somnolence [Recovered/Resolved]
  - Drug ineffective [Unknown]
  - Miosis [Recovered/Resolved]
  - Sopor [Recovered/Resolved]
  - Tremor [Recovered/Resolved]

NARRATIVE: CASE EVENT DATE: 20150206
